FAERS Safety Report 4889297-1 (Version None)
Quarter: 2006Q1

REPORT INFORMATION
  Report Type: 
  Country: None (occurrence: None)
  Receive Date: 20060120
  Receipt Date: 20060120
  Transmission Date: 20060701
  Serious: Yes (Hospitalization)
  Sender: FDA-Public Use
  Company Number: None

PATIENT
  Age: 38 Year
  Sex: Male

DRUGS (1)
  1. COUMADIN [Suspect]
     Indication: GASTRIC BYPASS
     Dates: start: 20050106, end: 20050114

REACTIONS (1)
  - GASTROINTESTINAL HAEMORRHAGE [None]
